FAERS Safety Report 4504431-0 (Version None)
Quarter: 2004Q4

REPORT INFORMATION
  Report Type: 
  Country: None (occurrence: None)
  Receive Date: 20041117
  Receipt Date: 20041117
  Transmission Date: 20050328
  Serious: Yes (Life-Threatening)
  Sender: FDA-Public Use
  Company Number: None

PATIENT
  Age: 79 Year
  Sex: Female
  Weight: 70.3 kg

DRUGS (10)
  1. VISIPAQUE [Suspect]
     Indication: SCAN WITH CONTRAST
     Dosage: 230 ML IV X1
     Route: 042
     Dates: start: 20040927
  2. ENALAPRIL [Concomitant]
  3. TOPROL-XL [Concomitant]
  4. LEVOTHYROXINE SODIUM [Concomitant]
  5. LIPITOR [Concomitant]
  6. EVISTA [Concomitant]
  7. XALATAN [Concomitant]
  8. FOSAMAX [Concomitant]
  9. ASPIRIN [Concomitant]
  10. B-12 [Concomitant]

REACTIONS (5)
  - CAROTID ARTERY DISEASE [None]
  - COMA [None]
  - CONTRAST MEDIA REACTION [None]
  - PROCEDURAL HYPOTENSION [None]
  - RESPIRATORY RATE INCREASED [None]
